FAERS Safety Report 6407566-0 (Version None)
Quarter: 2009Q4

REPORT INFORMATION
  Report Type: 
  Country: None (occurrence: None)
  Receive Date: 20091020
  Receipt Date: 20090928
  Transmission Date: 20100525
  Serious: Yes (Hospitalization, Other)
  Sender: FDA-Public Use
  Company Number: CHPA2009US19373

PATIENT
  Age: 59 Year
  Sex: Female
  Weight: 56.236 kg

DRUGS (2)
  1. EX-LAX MAX STR LAX PILLS SENNA (NCH) [Suspect]
     Indication: LAXATIVE SUPPORTIVE CARE
     Dosage: 9-10 PILLS, IN A DAY
     Route: 048
     Dates: end: 20090901
  2. PROTONIX [Concomitant]
     Indication: GASTROOESOPHAGEAL REFLUX DISEASE
     Dosage: UNK

REACTIONS (16)
  - ABDOMINAL PAIN UPPER [None]
  - ASTHENIA [None]
  - CONSTIPATION [None]
  - DECREASED APPETITE [None]
  - DEHYDRATION [None]
  - DIARRHOEA [None]
  - DRUG DEPENDENCE [None]
  - FEELING COLD [None]
  - GASTROINTESTINAL SURGERY [None]
  - HAEMATEMESIS [None]
  - HAEMATOCHEZIA [None]
  - MIGRAINE [None]
  - NAUSEA [None]
  - OVERDOSE [None]
  - SYNCOPE [None]
  - WEIGHT INCREASED [None]
